FAERS Safety Report 6245564-0 (Version None)
Quarter: 2009Q2

REPORT INFORMATION
  Report Type: 
  Country: None (occurrence: None)
  Receive Date: 20090625
  Receipt Date: 20090618
  Transmission Date: 20091009
  Serious: Yes (Hospitalization, Other)
  Sender: FDA-Public Use
  Company Number: DE-ABBOTT-09P-062-0576464-00

PATIENT
  Sex: Male

DRUGS (5)
  1. TRENANTONE [Suspect]
     Indication: PROSTATE CANCER METASTATIC
     Route: 058
     Dates: start: 20090224
  2. METOPROLOL SUCCINATE [Concomitant]
     Indication: ATRIAL FIBRILLATION
     Route: 048
     Dates: start: 20020101
  3. DIGITOXIN [Concomitant]
     Indication: DRUG USE FOR UNKNOWN INDICATION
     Route: 065
     Dates: start: 20020101
  4. ORGANIC NITRATES [Concomitant]
     Indication: DRUG USE FOR UNKNOWN INDICATION
     Dosage: 40-60
     Route: 048
     Dates: start: 20000101
  5. MARCUMAR [Concomitant]
     Indication: DRUG USE FOR UNKNOWN INDICATION
     Dosage: 1.5MG,0.5 TABLET PER DAY
     Route: 048

REACTIONS (2)
  - HOT FLUSH [None]
  - VENOUS THROMBOSIS LIMB [None]
